FAERS Safety Report 17548860 (Version 1)
Quarter: 2020Q1

REPORT INFORMATION
  Report Type: Spontaneous
  Country: JP (occurrence: JP)
  Receive Date: 20200317
  Receipt Date: 20200317
  Transmission Date: 20200409
  Serious: Yes (Life-Threatening, Hospitalization, Other)
  Sender: FDA-Public Use
  Company Number: JP-009507513-1911JPN003813J

PATIENT
  Age: 45 Year
  Sex: Male
  Weight: 67 kg

DRUGS (9)
  1. CALONAL [Suspect]
     Active Substance: ACETAMINOPHEN
     Indication: PYREXIA
     Dosage: 400 MILLIGRAM
     Route: 048
     Dates: start: 20190528, end: 20190603
  2. ANAEMETRO [Suspect]
     Active Substance: METRONIDAZOLE
     Indication: BRAIN ABSCESS
  3. KEYTRUDA [Suspect]
     Active Substance: PEMBROLIZUMAB
     Indication: NON-SMALL CELL LUNG CANCER
     Dosage: 200 MILLIGRAM, Q3W
     Route: 041
     Dates: start: 20181010, end: 20190508
  4. KEYTRUDA [Suspect]
     Active Substance: PEMBROLIZUMAB
     Dosage: 200 MILLIGRAM, Q3W
     Route: 041
     Dates: start: 20191030
  5. SULBACSIN [Suspect]
     Active Substance: AMPICILLIN SODIUM\SULBACTAM SODIUM
     Indication: BRAIN ABSCESS
     Dosage: 3 GRAM, QID
     Route: 042
     Dates: start: 20190527, end: 20190529
  6. CALONAL [Suspect]
     Active Substance: ACETAMINOPHEN
     Indication: PAIN
  7. ANAEMETRO [Suspect]
     Active Substance: METRONIDAZOLE
     Indication: LUNG ABSCESS
     Dosage: 500 MILLIGRAM, QID
     Route: 041
     Dates: start: 20190613, end: 20190722
  8. E KEPPRA [Suspect]
     Active Substance: LEVETIRACETAM
     Indication: PROPHYLAXIS
     Dosage: 1000MG, BID
     Route: 048
     Dates: start: 20190525, end: 20190724
  9. CEFTRIAXONE NA [Suspect]
     Active Substance: CEFTRIAXONE
     Indication: BRAIN ABSCESS
     Dosage: 2 GRAM, BID
     Route: 042
     Dates: start: 20190529, end: 20190613

REACTIONS (4)
  - Liver disorder [Unknown]
  - Brain abscess [Unknown]
  - Lung abscess [Unknown]
  - Toxic epidermal necrolysis [Recovering/Resolving]

NARRATIVE: CASE EVENT DATE: 20190524
